FAERS Safety Report 21047243 (Version 5)
Quarter: 2022Q3

REPORT INFORMATION
  Report Type: Spontaneous
  Country: US (occurrence: US)
  Receive Date: 20220706
  Receipt Date: 20220927
  Transmission Date: 20221027
  Serious: No
  Sender: FDA-Public Use
  Company Number: US-DSJP-DSU-2022-123912AA

PATIENT
  Sex: Male

DRUGS (2)
  1. TURALIO [Suspect]
     Active Substance: PEXIDARTINIB HYDROCHLORIDE
     Indication: Giant cell tumour of tendon sheath
     Dosage: 400 MG, BID
     Route: 048
     Dates: start: 20220627
  2. TURALIO [Suspect]
     Active Substance: PEXIDARTINIB HYDROCHLORIDE
     Indication: Synovitis

REACTIONS (9)
  - Feeling abnormal [Recovered/Resolved]
  - Pyrexia [Recovered/Resolved]
  - Joint effusion [Recovered/Resolved]
  - Malaise [Recovered/Resolved]
  - Dizziness [Recovering/Resolving]
  - Dizziness [Recovering/Resolving]
  - Product dose omission issue [Unknown]
  - Hair colour changes [Not Recovered/Not Resolved]
  - Product dose omission in error [Unknown]

NARRATIVE: CASE EVENT DATE: 20220101
